FAERS Safety Report 10420192 (Version 1)
Quarter: 2014Q3

REPORT INFORMATION
  Report Type: Report from Study
  Country: US (occurrence: None)
  Receive Date: 20140804
  Receipt Date: 20140804
  Transmission Date: 20150326
  Serious: Yes (Hospitalization)
  Sender: FDA-Public Use
  Company Number: 2012US006337

PATIENT
  Age: 67 Year
  Sex: Female
  Weight: 49.4 kg

DRUGS (17)
  1. PRAVASTATIN (PROVASTATIN) [Concomitant]
  2. ASPIRIN (ACETYLSALICYLIC ACID) [Concomitant]
     Active Substance: ASPIRIN
  3. VITAMIN D /00107901/ (ERGOCALCIFEROL) [Concomitant]
  4. MIRTAZAPINE (MIRTAZAPINE) [Concomitant]
     Active Substance: MIRTAZAPINE
  5. ALBUTEROL /00139501/ (SALBUTAMOL) [Concomitant]
  6. TRAMADOL (TRAMADOL) [Concomitant]
     Active Substance: TRAMADOL
  7. SINGULAIR (MONTELUKAT SODIUM) [Concomitant]
  8. PERFOROMIST [Concomitant]
     Active Substance: FORMOTEROL FUMARATE DIHYDRATE
  9. IPRATROPIUM (IPRATROPIUM) [Concomitant]
  10. NEXIUM [Concomitant]
     Active Substance: ESOMEPRAZOLE MAGNESIUM
  11. OXYGEN (OXYGEN) [Concomitant]
     Active Substance: OXYGEN
  12. GLASSIA [Suspect]
     Active Substance: .ALPHA.1-PROTEINASE INHIBITOR HUMAN
     Indication: ALPHA-1 ANTI-TRYPSIN DEFICIENCY
     Route: 042
     Dates: start: 201108
  13. CARVEDILOL (CARVEDILOL) [Concomitant]
     Active Substance: CARVEDILOL
  14. MONTELUKAST [Concomitant]
     Active Substance: MONTELUKAST SODIUM
  15. DUDESONIDE (DUDESONIDE) [Concomitant]
  16. DIGOXIN (DIGOXIN) [Concomitant]
     Active Substance: DIGOXIN
  17. HYDROCHLOORTHIAZIDE (HYDROCHLOROTHIAZIDE) [Concomitant]

REACTIONS (3)
  - Cardiac failure congestive [None]
  - Lung infection [None]
  - Chronic obstructive pulmonary disease [None]

NARRATIVE: CASE EVENT DATE: 20121202
